FAERS Safety Report 5306455-2 (Version None)
Quarter: 2007Q2

REPORT INFORMATION
  Report Type: 
  Country: None (occurrence: None)
  Receive Date: 20070417
  Receipt Date: 20070410
  Transmission Date: 20071010
  Serious: Yes (Hospitalization)
  Sender: FDA-Public Use
  Company Number: S07-ITA-00163-01

PATIENT
  Age: 33 Year
  Sex: Female

DRUGS (5)
  1. ESCITALOPRAM [Suspect]
     Indication: PANIC ATTACK
     Dosage: 5 MG DAILY PO
     Route: 048
     Dates: start: 20060701, end: 20060705
  2. ESCITALOPRAM [Suspect]
     Indication: PANIC ATTACK
     Dosage: 15 MG DAILY PO
     Route: 048
     Dates: start: 20060626, end: 20060630
  3. ESCITALOPRAM [Suspect]
     Indication: PANIC ATTACK
     Dosage: 15 MG DAILY PO
     Route: 048
     Dates: start: 20060621, end: 20060625
  4. ESCITALOPRAM [Suspect]
     Indication: PANIC ATTACK
     Dosage: 20 MG QD PO
     Route: 048
     Dates: start: 20060211, end: 20060621
  5. SEDATOL [Concomitant]

REACTIONS (4)
  - CAESAREAN SECTION [None]
  - DRUG EXPOSURE BEFORE PREGNANCY [None]
  - POSTPARTUM DEPRESSION [None]
  - PREGNANCY [None]
